FAERS Safety Report 4389191-9 (Version None)
Quarter: 2004Q3

REPORT INFORMATION
  Report Type: 
  Country: None (occurrence: None)
  Receive Date: 20040701
  Receipt Date: 20040701
  Transmission Date: 20050211
  Serious: Yes (Hospitalization)
  Sender: FDA-Public Use
  Company Number: None

PATIENT
  Sex: Male
  Weight: 84.369 kg

DRUGS (4)
  1. RITUXIMAB [Suspect]
     Indication: NON-HODGKIN'S LYMPHOMA
     Dosage: 750 Q 21DAYS INTRAVENOUS
     Route: 042
     Dates: start: 20001016, end: 20001128
  2. CHOP [Suspect]
     Indication: NON-HODGKIN'S LYMPHOMA
     Dosage: DAY 3 INTRAVENOUS
     Dates: start: 20001018, end: 20001130
  3. GLUCOPHAGE [Concomitant]
  4. ATIVAN [Concomitant]

REACTIONS (5)
  - COMPUTERISED TOMOGRAM ABNORMAL [None]
  - DYSPNOEA EXERTIONAL [None]
  - HYPOTENSION [None]
  - LUNG DISORDER [None]
  - PYREXIA [None]
